FAERS Safety Report 7720845-X (Version None)
Quarter: 2011Q3

REPORT INFORMATION
  Report Type: 
  Country: None (occurrence: None)
  Receive Date: 20110825
  Receipt Date: 20110804
  Transmission Date: 20111222
  Serious: Yes (Hospitalization)
  Sender: FDA-Public Use
  Company Number: 15949779

PATIENT
  Age: 79 Year
  Sex: Female

DRUGS (10)
  1. DEDROGYL (CALCIFEDIOL) [Concomitant]
  2. POTASSIUM CHLORIDE [Concomitant]
  3. RABEPRAZOLE SODIUM [Concomitant]
  4. COUMADIN [Suspect]
  5. MIRTAZAPINE [Concomitant]
  6. DAFALGAN (ACETAMINOPHEN) [Concomitant]
  7. BISOPROLOL FUMARATE [Concomitant]
  8. LASIX [Concomitant]
  9. NITROGLYCERIN [Concomitant]
  10. DUPHALAC [Concomitant]

REACTIONS (6)
  - INTERNATIONAL NORMALISED RATIO INCREASED [None]
  - DEBRIDEMENT [None]
  - PAIN IN EXTREMITY [None]
  - INFLAMMATION [None]
  - OEDEMA PERIPHERAL [None]
  - OVERDOSE [None]
